FAERS Safety Report 8515137-5 (Version None)
Quarter: 2012Q3

REPORT INFORMATION
  Report Type: 
  Country: None (occurrence: None)
  Receive Date: 20120717
  Receipt Date: 20120709
  Transmission Date: 20120928
  Serious: Yes (Life-Threatening, Hospitalization, Disabling)
  Sender: FDA-Public Use
  Company Number: US-GLAXOSMITHKLINE-A0728591A

PATIENT
  Age: 37 Year
  Sex: Male
  Weight: 132.7 kg

DRUGS (5)
  1. PRAVACHOL [Concomitant]
  2. LEVOTHYROXINE SODIUM [Concomitant]
  3. AVANDIA [Suspect]
     Indication: TYPE 2 DIABETES MELLITUS
     Dosage: 8MG PER DAY
     Route: 048
     Dates: start: 19990101
  4. ASPIRIN [Concomitant]
  5. FUROSEMIDE [Concomitant]

REACTIONS (5)
  - DISABILITY [None]
  - FLUID RETENTION [None]
  - CORONARY ARTERY DISEASE [None]
  - MYOCARDIAL INFARCTION [None]
  - MYOCARDIAL ISCHAEMIA [None]
